FAERS Safety Report 23997838 (Version 1)
Quarter: 2024Q2

REPORT INFORMATION
  Report Type: Spontaneous
  Country: US (occurrence: US)
  Receive Date: 20240621
  Receipt Date: 20240621
  Transmission Date: 20240716
  Serious: No
  Sender: FDA-Public Use
  Company Number: US-ELI_LILLY_AND_COMPANY-US202406013727

PATIENT
  Age: 35 Year
  Sex: Female

DRUGS (27)
  1. MOUNJARO [Suspect]
     Active Substance: TIRZEPATIDE
     Indication: Weight control
     Dosage: 2.5 MG, UNKNOWN
     Route: 065
     Dates: start: 20240416
  2. MOUNJARO [Suspect]
     Active Substance: TIRZEPATIDE
     Indication: Weight control
     Dosage: 2.5 MG, UNKNOWN
     Route: 065
     Dates: start: 20240416
  3. MOUNJARO [Suspect]
     Active Substance: TIRZEPATIDE
     Indication: Weight control
     Dosage: 2.5 MG, UNKNOWN
     Route: 065
     Dates: start: 20240416
  4. MOUNJARO [Suspect]
     Active Substance: TIRZEPATIDE
     Indication: Weight control
     Dosage: 2.5 MG, UNKNOWN
     Route: 065
     Dates: start: 20240416
  5. MOUNJARO [Suspect]
     Active Substance: TIRZEPATIDE
     Indication: Blood cholesterol increased
  6. MOUNJARO [Suspect]
     Active Substance: TIRZEPATIDE
     Indication: Blood cholesterol increased
  7. MOUNJARO [Suspect]
     Active Substance: TIRZEPATIDE
     Indication: Blood cholesterol increased
  8. MOUNJARO [Suspect]
     Active Substance: TIRZEPATIDE
     Indication: Blood cholesterol increased
  9. MOUNJARO [Suspect]
     Active Substance: TIRZEPATIDE
     Indication: Gastrointestinal disorder
  10. MOUNJARO [Suspect]
     Active Substance: TIRZEPATIDE
     Indication: Gastrointestinal disorder
  11. MOUNJARO [Suspect]
     Active Substance: TIRZEPATIDE
     Indication: Gastrointestinal disorder
  12. MOUNJARO [Suspect]
     Active Substance: TIRZEPATIDE
     Indication: Gastrointestinal disorder
  13. MOUNJARO [Suspect]
     Active Substance: TIRZEPATIDE
     Indication: Weight control
     Dosage: 5 MG, UNKNOWN
     Route: 065
  14. MOUNJARO [Suspect]
     Active Substance: TIRZEPATIDE
     Indication: Weight control
     Dosage: 5 MG, UNKNOWN
     Route: 065
  15. MOUNJARO [Suspect]
     Active Substance: TIRZEPATIDE
     Indication: Weight control
     Dosage: 5 MG, UNKNOWN
     Route: 065
  16. MOUNJARO [Suspect]
     Active Substance: TIRZEPATIDE
     Indication: Weight control
     Dosage: 5 MG, UNKNOWN
     Route: 065
  17. MOUNJARO [Suspect]
     Active Substance: TIRZEPATIDE
     Indication: Weight control
     Dosage: 5 MG, UNKNOWN
     Route: 065
  18. MOUNJARO [Suspect]
     Active Substance: TIRZEPATIDE
     Indication: Blood cholesterol increased
     Dosage: 5 MG, UNKNOWN
     Route: 065
  19. MOUNJARO [Suspect]
     Active Substance: TIRZEPATIDE
     Indication: Blood cholesterol increased
     Dosage: 5 MG, UNKNOWN
     Route: 065
  20. MOUNJARO [Suspect]
     Active Substance: TIRZEPATIDE
     Indication: Blood cholesterol increased
     Dosage: 5 MG, UNKNOWN
     Route: 065
  21. MOUNJARO [Suspect]
     Active Substance: TIRZEPATIDE
     Indication: Blood cholesterol increased
     Dosage: 5 MG, UNKNOWN
     Route: 065
  22. MOUNJARO [Suspect]
     Active Substance: TIRZEPATIDE
     Indication: Blood cholesterol increased
     Dosage: 5 MG, UNKNOWN
     Route: 065
  23. MOUNJARO [Suspect]
     Active Substance: TIRZEPATIDE
     Indication: Gastrointestinal disorder
  24. MOUNJARO [Suspect]
     Active Substance: TIRZEPATIDE
     Indication: Gastrointestinal disorder
  25. MOUNJARO [Suspect]
     Active Substance: TIRZEPATIDE
     Indication: Gastrointestinal disorder
  26. MOUNJARO [Suspect]
     Active Substance: TIRZEPATIDE
     Indication: Gastrointestinal disorder
  27. MOUNJARO [Suspect]
     Active Substance: TIRZEPATIDE
     Indication: Gastrointestinal disorder

REACTIONS (6)
  - Off label use [Unknown]
  - Incorrect dose administered [Unknown]
  - Injection site erythema [Recovered/Resolved]
  - Injection site urticaria [Recovered/Resolved]
  - Injection site pruritus [Recovered/Resolved]
  - Injection site bruising [Recovered/Resolved]

NARRATIVE: CASE EVENT DATE: 20240416
